FAERS Safety Report 7153340-X (Version None)
Quarter: 2010Q4

REPORT INFORMATION
  Report Type: 
  Country: None (occurrence: None)
  Receive Date: 20101213
  Receipt Date: 20101207
  Transmission Date: 20110411
  Serious: Yes (Death)
  Sender: FDA-Public Use
  Company Number: FR-ROCHE-746758

PATIENT
  Sex: Male

DRUGS (6)
  1. RIVOTRIL [Suspect]
     Route: 048
     Dates: start: 20101123
  2. LEPONEX [Suspect]
     Route: 048
     Dates: start: 20100817
  3. LEPONEX [Suspect]
     Route: 048
     Dates: start: 20101123
  4. EMLA [Concomitant]
  5. FORLAX [Concomitant]
     Dosage: AS LONG TREATMENT
  6. RIVOTRIL [Concomitant]
     Dosage: UPPER DOSAGE

REACTIONS (1)
  - SUDDEN DEATH [None]
